FAERS Safety Report 8809221 (Version 1)
Quarter: 2012Q4

REPORT INFORMATION
  Report Type: Spontaneous
  Country: US (occurrence: None)
  Receive Date: 20120921
  Receipt Date: 20120921
  Transmission Date: 20130627
  Serious: Yes (Other)
  Sender: FDA-Public Use
  Company Number: None

PATIENT
  Age: 46 Year
  Sex: Male
  Weight: 102 kg

DRUGS (1)
  1. TOPIRAMATE [Suspect]
     Indication: MOOD DISORDER NOS
     Dosage: topiramate 25mg BID PO
     Route: 048
     Dates: start: 20120604, end: 20120615

REACTIONS (7)
  - Eye discharge [None]
  - Scleral disorder [None]
  - Ocular hyperaemia [None]
  - Eye irritation [None]
  - Eye pruritus [None]
  - Unevaluable event [None]
  - Fear [None]
